FAERS Safety Report 9823007 (Version 2)
Quarter: 2014Q1

REPORT INFORMATION
  Report Type: Spontaneous
  Country: US (occurrence: US)
  Receive Date: 20140116
  Receipt Date: 20140116
  Transmission Date: 20141002
  Serious: No
  Sender: FDA-Public Use
  Company Number: US-GILEAD-2010-0033713

PATIENT
  Sex: Female

DRUGS (8)
  1. LETAIRIS [Suspect]
     Indication: PULMONARY ARTERIAL HYPERTENSION
     Route: 048
     Dates: start: 20090910, end: 20091215
  2. BYSTOLIC [Concomitant]
  3. ZOCOR [Concomitant]
  4. HYDRALAZINE [Concomitant]
  5. LASIX [Concomitant]
  6. BENICAR [Concomitant]
  7. POTASSIUM [Concomitant]
  8. FOLIC ACID [Concomitant]

REACTIONS (1)
  - Local swelling [Recovered/Resolved]
